FAERS Safety Report 21688424 (Version 2)
Quarter: 2022Q4

REPORT INFORMATION
  Report Type: Spontaneous
  Country: US (occurrence: US)
  Receive Date: 20221206
  Receipt Date: 20221209
  Transmission Date: 20230113
  Serious: Yes (Hospitalization, Other)
  Sender: FDA-Public Use
  Company Number: US-PFIZER INC-202201348641

PATIENT
  Age: 25 Year
  Sex: Male
  Weight: 77 kg

DRUGS (1)
  1. BESPONSA [Suspect]
     Active Substance: INOTUZUMAB OZOGAMICIN
     Indication: Plasma cell myeloma refractory
     Dosage: 1.6 MG (0.8MG PER METER SQUARED)
     Dates: start: 20221201

REACTIONS (6)
  - Muscular weakness [Recovering/Resolving]
  - Paralysis [Not Recovered/Not Resolved]
  - Hypokalaemia [Unknown]
  - Hypophosphataemia [Unknown]
  - Glucose urine present [Unknown]
  - Pain in extremity [Recovering/Resolving]

NARRATIVE: CASE EVENT DATE: 20221201
